FAERS Safety Report 23917688 (Version 1)
Quarter: 2024Q2

REPORT INFORMATION
  Report Type: Spontaneous
  Country: GB (occurrence: GB)
  Receive Date: 20240530
  Receipt Date: 20240530
  Transmission Date: 20240716
  Serious: Yes (Death, Other)
  Sender: FDA-Public Use
  Company Number: GB-HALEON-2175428

PATIENT
  Age: 10 Year
  Sex: Female

DRUGS (6)
  1. ACETAMINOPHEN [Suspect]
     Active Substance: ACETAMINOPHEN
     Indication: Illness
  2. ACETAMINOPHEN [Suspect]
     Active Substance: ACETAMINOPHEN
     Indication: Lower respiratory tract infection
  3. CEFUROXIME [Concomitant]
     Active Substance: CEFUROXIME
     Indication: Illness
  4. CEFUROXIME [Concomitant]
     Active Substance: CEFUROXIME
     Indication: Lower respiratory tract infection
  5. ALBUTEROL [Concomitant]
     Active Substance: ALBUTEROL
     Indication: Lower respiratory tract infection
  6. ALBUTEROL [Concomitant]
     Active Substance: ALBUTEROL
     Indication: Illness

REACTIONS (5)
  - Pyroglutamic acidosis [Fatal]
  - Cardiac arrest [Fatal]
  - Unresponsive to stimuli [Unknown]
  - Circulatory collapse [Unknown]
  - Metabolic acidosis [Fatal]
